FAERS Safety Report 6522729-1 (Version None)
Quarter: 2009Q4

REPORT INFORMATION
  Report Type: 
  Country: None (occurrence: None)
  Receive Date: 20091230
  Receipt Date: 20091222
  Transmission Date: 20100525
  Serious: Yes (Hospitalization, Other)
  Sender: FDA-Public Use
  Company Number: BR-ABBOTT-09P-020-0604231-00

PATIENT
  Sex: Female
  Weight: 95 kg

DRUGS (17)
  1. HUMIRA [Suspect]
     Indication: RHEUMATOID ARTHRITIS
     Route: 058
  2. BENICAR [Concomitant]
     Indication: CARDIAC DISORDER
     Route: 048
     Dates: start: 20070101
  3. BENICAR [Concomitant]
     Indication: HYPERTENSION
  4. PRESSAT [Concomitant]
     Indication: CARDIAC DISORDER
     Route: 048
     Dates: start: 20070101
  5. PRESSAT [Concomitant]
     Indication: HYPERTENSION
  6. ATENOLOL [Concomitant]
     Indication: CARDIAC DISORDER
     Route: 048
     Dates: start: 20080101
  7. CITALOPRAM HYDROBROMIDE [Concomitant]
     Indication: CARDIAC DISORDER
     Route: 048
     Dates: start: 20090801
  8. CITALOPRAM HYDROBROMIDE [Concomitant]
     Indication: DEPRESSION
  9. DIGEPLUS [Concomitant]
     Indication: GASTRIC DISORDER
     Route: 048
     Dates: start: 20050101
  10. DIGEPLUS [Concomitant]
     Indication: GASTRITIS
  11. OMEPRAZOLE [Concomitant]
     Indication: GASTRIC DISORDER
     Route: 048
     Dates: start: 20050101
  12. OMEPRAZOLE [Concomitant]
     Indication: GASTRITIS
  13. CALCIUM CARBONATE W/VITAMIN D [Concomitant]
     Indication: MINERAL SUPPLEMENTATION
     Route: 048
     Dates: start: 20081001
  14. PROTOS [Concomitant]
     Indication: MINERAL SUPPLEMENTATION
     Route: 048
     Dates: start: 20081001
  15. PROTOS [Concomitant]
     Indication: OSTEOPOROSIS
  16. FIXICAL [Concomitant]
     Indication: OSTEOPOROSIS
     Route: 048
     Dates: start: 20081201
  17. DIPROSPAN [Concomitant]
     Indication: RHEUMATOID ARTHRITIS
     Route: 030
     Dates: start: 20030101

REACTIONS (10)
  - ARTHRALGIA [None]
  - DEVICE BREAKAGE [None]
  - FALL [None]
  - GAIT DISTURBANCE [None]
  - INJECTION SITE ERYTHEMA [None]
  - INJECTION SITE IRRITATION [None]
  - INJECTION SITE NODULE [None]
  - INJECTION SITE PRURITUS [None]
  - INJECTION SITE RASH [None]
  - INJECTION SITE REACTION [None]
